FAERS Safety Report 8799712 (Version 1)
Quarter: 2012Q4

REPORT INFORMATION
  Report Type: 
  Country: DE (occurrence: DE)
  Receive Date: 20120919
  Receipt Date: 20120919
  Transmission Date: 20130627
  Serious: Yes (Hospitalization)
  Sender: FDA-Public Use
  Company Number: DE-009507513-1209DEU004597

PATIENT

DRUGS (10)
  1. JANUMET [Suspect]
     Indication: DIABETES MELLITUS
     Dosage: UNK, qd
     Route: 048
     Dates: start: 2008, end: 201203
  2. JANUMET [Suspect]
     Dosage: UNK
     Route: 048
     Dates: start: 20120723
  3. AVALOX [Concomitant]
     Dosage: UNK
     Dates: start: 201203
  4. DIGIMERCK [Concomitant]
     Indication: CARDIAC FAILURE
     Dosage: UNK
     Dates: start: 201204
  5. RAMIPRIL [Concomitant]
     Indication: CARDIAC FAILURE
     Dosage: UNK
     Dates: start: 201204
  6. METOHEXAL [Concomitant]
     Indication: CARDIAC FAILURE
     Dosage: 95 mg, UNK
     Dates: start: 201204
  7. AMLODIPINE [Concomitant]
     Indication: CARDIAC FAILURE
     Dosage: UNK
     Dates: start: 201204
  8. TORSEMIDE [Concomitant]
     Indication: CARDIAC FAILURE
     Dosage: 10 mg, UNK
     Dates: start: 201204
  9. FALITHROM [Concomitant]
     Dosage: UNK
     Dates: start: 201204
  10. PANTOPRAZOLE [Concomitant]

REACTIONS (3)
  - Cardiac failure [Recovering/Resolving]
  - Cardiac failure [Not Recovered/Not Resolved]
  - Drug administration error [Unknown]
